FAERS Safety Report 5849499-4 (Version None)
Quarter: 2008Q3

REPORT INFORMATION
  Report Type: 
  Country: None (occurrence: None)
  Receive Date: 20080819
  Receipt Date: 20080807
  Transmission Date: 20090109
  Serious: Yes (Disabling, Congenital Anomaly)
  Sender: FDA-Public Use
  Company Number: A0681888A

PATIENT
  Sex: Male

DRUGS (2)
  1. PAXIL [Suspect]
     Indication: DRUG USE FOR UNKNOWN INDICATION
     Dosage: 40MG PER DAY
     Dates: start: 20040201, end: 20060801
  2. FOLIC ACID [Concomitant]

REACTIONS (7)
  - CEREBROVASCULAR ACCIDENT [None]
  - CONGENITAL ANOMALY [None]
  - DEMENTIA [None]
  - DRUG EXPOSURE DURING PREGNANCY [None]
  - HEMIPARESIS [None]
  - HEMIPLEGIA [None]
  - PORENCEPHALY [None]
